FAERS Safety Report 8560120-7 (Version None)
Quarter: 2012Q2

REPORT INFORMATION
  Report Type: 
  Country: None (occurrence: None)
  Receive Date: 20120418
  Receipt Date: 20110316
  Transmission Date: 20120825
  Serious: Yes (Other)
  Sender: FDA-Public Use
  Company Number: PHHY2011US21931

PATIENT
  Age: 80 Year
  Sex: Male

DRUGS (9)
  1. VITAMIN B12 [Concomitant]
  2. DIOVAN [Suspect]
     Indication: BLOOD POTASSIUM INCREASED
     Dosage: 160 MG, PER DAY 80 MG, QD
  3. DIGOXIN [Concomitant]
  4. NAC (ACETYLCYSTEINE) [Concomitant]
  5. NORVASC [Concomitant]
  6. VITAMINS (NO INGREDIENTS/SUBSTANCES) [Concomitant]
  7. EZETIMIBE [Concomitant]
  8. ASPIRIN [Concomitant]
  9. PLAVIX [Concomitant]

REACTIONS (1)
  - BLOOD POTASSIUM INCREASED [None]
